FAERS Safety Report 20355961 (Version 1)
Quarter: 2022Q1

REPORT INFORMATION
  Report Type: Spontaneous
  Country: US (occurrence: None)
  Receive Date: 20220119
  Receipt Date: 20220119
  Transmission Date: 20220423
  Serious: Yes (Disabling)
  Sender: FDA-Public Use
  Company Number: None

PATIENT
  Age: 57 Year
  Sex: Male
  Weight: 92.25 kg

DRUGS (1)
  1. HERBALS\MITRAGYNINE [Suspect]
     Active Substance: HERBALS\MITRAGYNINE
     Indication: Occupational exposure to product
     Dosage: FREQUENCY : DAILY;?
     Route: 055

REACTIONS (8)
  - Occupational exposure to product [None]
  - Nervousness [None]
  - Muscular weakness [None]
  - Disturbance in attention [None]
  - Insomnia [None]
  - Withdrawal syndrome [None]
  - Manufacturing process control procedure issue [None]
  - Manufacturing materials contamination [None]

NARRATIVE: CASE EVENT DATE: 20220113
